FAERS Safety Report 6827197-8 (Version None)
Quarter: 2010Q3

REPORT INFORMATION
  Report Type: 
  Country: None (occurrence: None)
  Receive Date: 20100709
  Receipt Date: 20100708
  Transmission Date: 20110219
  Serious: Yes (Other)
  Sender: FDA-Public Use
  Company Number: US-ROXANE LABORATORIES, INC.-2010-RO-00808RO

PATIENT
  Age: 10 Year
  Sex: Male

DRUGS (2)
  1. DEXAMETHASONE [Suspect]
     Indication: B PRECURSOR TYPE ACUTE LEUKAEMIA
  2. FLUOXETINE HCL [Suspect]
     Indication: MAJOR DEPRESSION
     Dosage: 20 MG

REACTIONS (4)
  - AGITATION [None]
  - INSOMNIA [None]
  - IRRITABILITY [None]
  - VIOLENCE-RELATED SYMPTOM [None]
